FAERS Safety Report 7956234-2 (Version None)
Quarter: 2011Q4

REPORT INFORMATION
  Report Type: 
  Country: None (occurrence: None)
  Receive Date: 20111205
  Receipt Date: 20111130
  Transmission Date: 20120403
  Serious: Yes (Death, Other)
  Sender: FDA-Public Use
  Company Number: US-BRISTOL-MYERS SQUIBB COMPANY-16261083

PATIENT
  Age: 18 Year
  Sex: Male
  Weight: 124 kg

DRUGS (2)
  1. PROZAC [Suspect]
     Indication: AUTISM
  2. ABILIFY [Suspect]
     Indication: AUTISM
     Route: 048
     Dates: start: 20100301, end: 20111101

REACTIONS (2)
  - DEATH [None]
  - CONVULSION [None]
